FAERS Safety Report 9099628 (Version 1)
Quarter: 2013Q1

REPORT INFORMATION
  Report Type: Spontaneous
  Country: BR (occurrence: BR)
  Receive Date: 20130214
  Receipt Date: 20130214
  Transmission Date: 20140127
  Serious: Yes (Other)
  Sender: FDA-Public Use
  Company Number: PHHY2013BR012781

PATIENT
  Sex: 0

DRUGS (6)
  1. DIOVAN [Suspect]
     Indication: HYPERTENSION
     Dosage: 1 DF PER DAY
     Dates: start: 2001
  2. SPIRIVA [Concomitant]
     Indication: ASTHMA
     Dosage: 1 DF, QD
     Dates: start: 201301
  3. ALENIA [Concomitant]
     Indication: ASTHMA
     Dosage: 2 DF DAILY
     Dates: start: 201301
  4. SOMALGIN [Concomitant]
     Indication: BLOOD DISORDER
     Dosage: 1 DF PER DAY
     Dates: start: 2001
  5. SIMVASTATIN [Concomitant]
     Indication: BLOOD CHOLESTEROL INCREASED
     Dosage: 1 DF PER DAY
     Route: 048
     Dates: start: 2001
  6. ONBRIZE [Concomitant]
     Indication: ASTHMA
     Dosage: 2 DF PER DAY
     Dates: start: 2012, end: 201301

REACTIONS (3)
  - Aortic rupture [Recovered/Resolved]
  - Cataract [Not Recovered/Not Resolved]
  - Abdominal hernia [Not Recovered/Not Resolved]
